FAERS Safety Report 11912930 (Version 2)
Quarter: 2016Q3

REPORT INFORMATION
  Report Type: Report from Study
  Country: US (occurrence: US)
  Receive Date: 20160113
  Receipt Date: 20160826
  Transmission Date: 20161109
  Serious: Yes (Other)
  Sender: FDA-Public Use
  Company Number: US-BRISTOL-MYERS SQUIBB COMPANY-12276671

PATIENT
  Age: 18 Year
  Sex: Female

DRUGS (3)
  1. VIRACEPT [Suspect]
     Active Substance: NELFINAVIR MESYLATE
     Indication: ASYMPTOMATIC HIV INFECTION
     Dosage: 2500 MG, QD
     Route: 048
     Dates: start: 20020514
  2. DIDANOSINE. [Suspect]
     Active Substance: DIDANOSINE
     Indication: ASYMPTOMATIC HIV INFECTION
     Dosage: 400 MG, QD
     Route: 048
     Dates: start: 20020514
  3. RETROVIR [Suspect]
     Active Substance: ZIDOVUDINE
     Indication: ASYMPTOMATIC HIV INFECTION
     Dosage: 600 MG, QD
     Route: 048
     Dates: start: 20020514

REACTIONS (6)
  - Drug abuse [Unknown]
  - Epstein-Barr virus infection [Unknown]
  - Live birth [Unknown]
  - Tobacco abuse [Unknown]
  - Pregnancy [Recovered/Resolved]
  - Bipolar disorder [Unknown]

NARRATIVE: CASE EVENT DATE: 2002
